FAERS Safety Report 6686434-3 (Version None)
Quarter: 2010Q2

REPORT INFORMATION
  Report Type: 
  Country: None (occurrence: None)
  Receive Date: 20100419
  Receipt Date: 20100409
  Transmission Date: 20101027
  Serious: Yes (Other)
  Sender: FDA-Public Use
  Company Number: B0640557A

PATIENT
  Sex: Male

DRUGS (9)
  1. ELTROMBOPAG [Suspect]
     Indication: IDIOPATHIC THROMBOCYTOPENIC PURPURA
     Dosage: 25MG PER DAY
     Route: 048
     Dates: start: 20091127, end: 20100218
  2. SALINE [Concomitant]
  3. PARIET [Concomitant]
     Indication: INSOMNIA
  4. ZOLPIDEM [Concomitant]
  5. SOLU-MEDROL [Concomitant]
  6. DEXAMETHASONE [Concomitant]
  7. AZATHIOPRINE [Concomitant]
     Indication: IDIOPATHIC THROMBOCYTOPENIC PURPURA
     Dates: start: 20080806, end: 20090402
  8. DANAZOL [Concomitant]
     Indication: IDIOPATHIC THROMBOCYTOPENIC PURPURA
     Dates: start: 20090123, end: 20090219
  9. CYCLOSPORINE [Concomitant]
     Indication: IDIOPATHIC THROMBOCYTOPENIC PURPURA
     Dates: start: 20090403, end: 20090406

REACTIONS (1)
  - LEUKOERYTHROBLASTOSIS [None]
